FAERS Safety Report 10192654 (Version 2)
Quarter: 2014Q2

REPORT INFORMATION
  Report Type: Report from Study
  Country: US (occurrence: US)
  Receive Date: 20140523
  Receipt Date: 20140523
  Transmission Date: 20141212
  Serious: Yes (Congenital Anomaly, Other)
  Sender: FDA-Public Use
  Company Number: US-TEVA-476927USA

PATIENT
  Sex: Female

DRUGS (3)
  1. PROVIGIL [Suspect]
     Indication: CIRCADIAN RHYTHM SLEEP DISORDER
     Route: 048
  2. VITAMIN D NOS [Concomitant]
     Indication: VITAMIN D DEFICIENCY
  3. PRENATAL VITAMINS [Concomitant]
     Indication: PREGNANCY

REACTIONS (2)
  - Cystic lymphangioma [Unknown]
  - Pregnancy [Unknown]
